FAERS Safety Report 10786093 (Version 2)
Quarter: 2015Q1

REPORT INFORMATION
  Report Type: Spontaneous
  Country: US (occurrence: US)
  Receive Date: 20150211
  Receipt Date: 20150316
  Transmission Date: 20150721
  Serious: Yes (Other)
  Sender: FDA-Public Use
  Company Number: US-SHIRE-US201500986

PATIENT
  Age: 50 Year
  Sex: Female
  Weight: 77.55 kg

DRUGS (6)
  1. FOLIC ACID. [Concomitant]
     Active Substance: FOLIC ACID
     Indication: ANAEMIA
  2. MERCAPTOPURINE. [Concomitant]
     Active Substance: MERCAPTOPURINE
     Indication: COLITIS ULCERATIVE
     Dosage: 75 MG, 1X/DAY:QD (1.5 TABLETS)
     Route: 065
  3. FOLIC ACID. [Concomitant]
     Active Substance: FOLIC ACID
     Indication: COLITIS ULCERATIVE
     Dosage: 1 MG, 1X/DAY:QD
     Route: 065
     Dates: start: 1990
  4. IRON [Concomitant]
     Active Substance: IRON
     Indication: ANAEMIA
  5. LIALDA [Suspect]
     Active Substance: MESALAMINE
     Indication: COLITIS ULCERATIVE
     Dosage: 2.4 G (TWO 1.2 G TABLETS), 2X/DAY:BID
     Route: 048
     Dates: start: 20140711
  6. IRON [Concomitant]
     Active Substance: IRON
     Indication: COLITIS ULCERATIVE
     Dosage: 1 DF, 1X/DAY:QD
     Route: 065
     Dates: start: 2014

REACTIONS (3)
  - Dry mouth [Not Recovered/Not Resolved]
  - Inappropriate schedule of drug administration [Not Recovered/Not Resolved]
  - Nasal septum deviation [Not Recovered/Not Resolved]

NARRATIVE: CASE EVENT DATE: 201411
